FAERS Safety Report 7319815-5 (Version None)
Quarter: 2011Q1

REPORT INFORMATION
  Report Type: 
  Country: None (occurrence: None)
  Receive Date: 20110228
  Receipt Date: 20101015
  Transmission Date: 20110831
  Serious: No
  Sender: FDA-Public Use
  Company Number: A0885225A

PATIENT
  Age: 65 Year
  Sex: Female

DRUGS (2)
  1. CONCURRENT MEDICATIONS [Concomitant]
  2. LAMICTAL [Suspect]
     Indication: MAJOR DEPRESSION
     Route: 065

REACTIONS (1)
  - ENURESIS [None]
